FAERS Safety Report 21812493 (Version 2)
Quarter: 2023Q1

REPORT INFORMATION
  Report Type: Spontaneous
  Country: JP (occurrence: JP)
  Receive Date: 20230103
  Receipt Date: 20230118
  Transmission Date: 20230418
  Serious: Yes (Hospitalization)
  Sender: FDA-Public Use
  Company Number: JP-TEVA-2022-JP-2842173

PATIENT
  Age: 71 Year
  Sex: Male

DRUGS (11)
  1. PREDNISOLONE [Suspect]
     Active Substance: PREDNISOLONE
     Indication: Dermatomyositis
     Dosage: 1 MG/KG DAILY; HIGH DOSE WITH SUBSEQUENT GRADUAL DOSE REDUCTION
     Route: 048
  2. PREDNISOLONE [Suspect]
     Active Substance: PREDNISOLONE
     Indication: Interstitial lung disease
     Dosage: SECOND PULSE THERAPY
     Route: 065
  3. VORICONAZOLE [Interacting]
     Active Substance: VORICONAZOLE
     Indication: Fungal infection
     Route: 065
  4. METHYLPREDNISOLONE [Suspect]
     Active Substance: METHYLPREDNISOLONE
     Indication: Dermatomyositis
     Dosage: PULSE THERAPY FOR THREE DAYS
     Route: 042
  5. METHYLPREDNISOLONE [Suspect]
     Active Substance: METHYLPREDNISOLONE
     Indication: Interstitial lung disease
     Dosage: SECOND PULSE THERAPY
     Route: 065
  6. CYCLOPHOSPHAMIDE [Suspect]
     Active Substance: CYCLOPHOSPHAMIDE
     Indication: Dermatomyositis
     Dosage: .7143 MG/KG DAILY;
     Route: 042
  7. CYCLOPHOSPHAMIDE [Suspect]
     Active Substance: CYCLOPHOSPHAMIDE
     Indication: Interstitial lung disease
  8. TACROLIMUS [Interacting]
     Active Substance: TACROLIMUS
     Indication: Dermatomyositis
     Dosage: UNKNOWN INITIAL DOSE.SUBSEQUENTLY, TACROLIMUS DOSE WAS ADJUSTED TO RETAIN 12 H BLOOD TROUGH LEVEL WI
     Route: 065
  9. TACROLIMUS [Interacting]
     Active Substance: TACROLIMUS
     Indication: Interstitial lung disease
  10. VALGANCICLOVIR [Concomitant]
     Active Substance: VALGANCICLOVIR
     Indication: Cytomegalovirus infection reactivation
     Route: 065
  11. GANCICLOVIR [Concomitant]
     Active Substance: GANCICLOVIR
     Indication: Cytomegalovirus infection reactivation
     Route: 065

REACTIONS (3)
  - Immunosuppressant drug level increased [Unknown]
  - Drug ineffective [Unknown]
  - Drug interaction [Unknown]
